FAERS Safety Report 17374912 (Version 14)
Quarter: 2020Q2

REPORT INFORMATION
  Report Type: Report from Study
  Country: None (occurrence: US)
  Receive Date: 20200205
  Receipt Date: 20200406
  Transmission Date: 20200713
  Serious: Yes (Other)
  Sender: FDA-Public Use
  Company Number: US-ABBVIE-20K-163-3257283-00

PATIENT
  Sex: Female
  Weight: 95.79 kg

DRUGS (2)
  1. HUMIRA [Suspect]
     Active Substance: ADALIMUMAB
     Route: 058
  2. HUMIRA [Suspect]
     Active Substance: ADALIMUMAB
     Indication: RHEUMATOID ARTHRITIS
     Dosage: CF
     Route: 058
     Dates: start: 2013

REACTIONS (25)
  - Immunodeficiency [Recovered/Resolved]
  - Pruritus [Recovered/Resolved]
  - Fall [Unknown]
  - Muscle spasms [Not Recovered/Not Resolved]
  - Eye irritation [Not Recovered/Not Resolved]
  - Dysphonia [Recovering/Resolving]
  - Dry eye [Recovered/Resolved]
  - Gastrooesophageal reflux disease [Recovering/Resolving]
  - Back pain [Unknown]
  - Diarrhoea [Unknown]
  - Arthralgia [Not Recovered/Not Resolved]
  - Asthma [Recovered/Resolved]
  - Cyst [Recovering/Resolving]
  - Eye pruritus [Not Recovered/Not Resolved]
  - Eye infection [Recovered/Resolved]
  - Fungal skin infection [Recovered/Resolved]
  - Gastrointestinal tract irritation [Unknown]
  - Nasopharyngitis [Recovered/Resolved]
  - Post-traumatic pain [Unknown]
  - Hypersensitivity [Recovered/Resolved]
  - Erythema [Unknown]
  - Rash [Recovering/Resolving]
  - Gait disturbance [Unknown]
  - Pain in extremity [Recovered/Resolved]
  - Muscle spasms [Recovered/Resolved]

NARRATIVE: CASE EVENT DATE: 2019
